FAERS Safety Report 6276924-X (Version None)
Quarter: 2009Q3

REPORT INFORMATION
  Report Type: 
  Country: None (occurrence: None)
  Receive Date: 20090722
  Receipt Date: 20081020
  Transmission Date: 20100115
  Serious: No
  Sender: FDA-Public Use
  Company Number: US-BRISTOL-MYERS SQUIBB COMPANY-14375646

PATIENT
  Age: 69 Year
  Sex: Male
  Weight: 94 kg

DRUGS (1)
  1. COUMADIN [Suspect]
     Indication: THROMBOSIS
     Dosage: 10MG/D FOR 1D;5MG/D FOR 1D;6.25MG/D FOR 1D ATLAST 5MG/D(BATCH/LOT# 0056217275/7L31599 EXP: 03/2011)

REACTIONS (1)
  - PRURITUS [None]
